FAERS Safety Report 7877510-8 (Version None)
Quarter: 2011Q4

REPORT INFORMATION
  Report Type: 
  Country: None (occurrence: None)
  Receive Date: 20111031
  Receipt Date: 20111025
  Transmission Date: 20120403
  Serious: Yes (Death)
  Sender: FDA-Public Use
  Company Number: JP-ABBOTT-11P-087-0857432-00

PATIENT
  Sex: Male
  Weight: 43 kg

DRUGS (6)
  1. MARZULENE S [Concomitant]
     Indication: PRODUCT USED FOR UNKNOWN INDICATION
     Route: 048
  2. BAYLOTENSIN [Concomitant]
     Indication: PRODUCT USED FOR UNKNOWN INDICATION
     Route: 048
  3. DASEN [Concomitant]
     Indication: PRODUCT USED FOR UNKNOWN INDICATION
     Route: 048
     Dates: start: 20031007
  4. CEFDINIR [Suspect]
     Indication: PYREXIA
     Route: 048
     Dates: start: 20031007, end: 20031009
  5. HUSCODE [Concomitant]
     Indication: PRODUCT USED FOR UNKNOWN INDICATION
     Dates: start: 20031007
  6. ISODINE [Concomitant]
     Indication: PRODUCT USED FOR UNKNOWN INDICATION
     Dosage: MOUTHWASH
     Dates: start: 20031007

REACTIONS (1)
  - INTERSTITIAL LUNG DISEASE [None]
